FAERS Safety Report 6884855-7 (Version None)
Quarter: 2010Q3

REPORT INFORMATION
  Report Type: 
  Country: None (occurrence: None)
  Receive Date: 20100729
  Receipt Date: 20070907
  Transmission Date: 20110219
  Serious: No
  Sender: FDA-Public Use
  Company Number: US-PFIZER INC-2007075546

PATIENT
  Sex: Female
  Weight: 203 kg

DRUGS (4)
  1. CELEBREX [Suspect]
     Indication: ARTHRITIS
     Dates: start: 20070904, end: 20070901
  2. ARTHROTEC [Suspect]
     Indication: ARTHRITIS
     Dates: end: 20070902
  3. GENERAL NUTRIENTS [Suspect]
  4. CARDIOVASCULAR SYSTEM DRUGS [Concomitant]

REACTIONS (2)
  - DIARRHOEA [None]
  - FLATULENCE [None]
